FAERS Safety Report 5155949-1 (Version None)
Quarter: 2006Q4

REPORT INFORMATION
  Report Type: 
  Country: None (occurrence: None)
  Receive Date: 20061114
  Receipt Date: 20061101
  Transmission Date: 20070319
  Serious: Yes (Death)
  Sender: FDA-Public Use
  Company Number: HQWYE308603NOV06

PATIENT
  Age: 28 Year

DRUGS (3)
  1. PHENERGAN [Suspect]
     Dates: start: 20050101, end: 20050101
  2. COCAINE (COCAINE) [Suspect]
     Dates: start: 20050101, end: 20050101
  3. METHADONE HCL [Suspect]
     Dates: start: 20050101, end: 20050101

REACTIONS (2)
  - DRUG ABUSER [None]
  - INTENTIONAL OVERDOSE [None]
